FAERS Safety Report 4591781-5 (Version None)
Quarter: 2005Q1

REPORT INFORMATION
  Report Type: 
  Country: None (occurrence: None)
  Receive Date: 20050218
  Receipt Date: 20050209
  Transmission Date: 20050727
  Serious: Yes (Hospitalization)
  Sender: FDA-Public Use
  Company Number: US014679

PATIENT
  Age: 38 Year
  Sex: Female

DRUGS (6)
  1. PROVIGIL [Suspect]
     Indication: NARCOLEPSY
     Dosage: 100 MG QD ORAL
     Route: 048
  2. ASACOL [Concomitant]
  3. PREDNISONE [Concomitant]
  4. CENESTIN [Concomitant]
  5. PROTONIX ^WYETH-AYERST^ [Concomitant]
  6. LEVOXYL [Concomitant]

REACTIONS (4)
  - BACTERAEMIA [None]
  - CATHETER RELATED INFECTION [None]
  - COELIAC DISEASE [None]
  - DEHYDRATION [None]
